FAERS Safety Report 8288275-2 (Version None)
Quarter: 2012Q2

REPORT INFORMATION
  Report Type: 
  Country: None (occurrence: None)
  Receive Date: 20120416
  Receipt Date: 20120410
  Transmission Date: 20120825
  Serious: Yes (Other)
  Sender: FDA-Public Use
  Company Number: PHHY2012CA005277

PATIENT
  Sex: Female

DRUGS (2)
  1. GILENYA [Suspect]
     Indication: RELAPSING-REMITTING MULTIPLE SCLEROSIS
     Dosage: 0.5 MG, QD
     Route: 048
     Dates: start: 20111212
  2. GILENYA [Suspect]
     Dosage: 0.5 MG, QD
     Route: 048
     Dates: start: 20120319, end: 20120410

REACTIONS (8)
  - BLOOD URINE PRESENT [None]
  - GAIT DISTURBANCE [None]
  - NAUSEA [None]
  - ABDOMINAL PAIN [None]
  - ALOPECIA [None]
  - CONSTIPATION [None]
  - URINARY TRACT INFECTION [None]
  - HYPOKINESIA [None]
